FAERS Safety Report 24860890 (Version 3)
Quarter: 2025Q1

REPORT INFORMATION
  Report Type: Spontaneous
  Country: JP (occurrence: JP)
  Receive Date: 20250120
  Receipt Date: 20250220
  Transmission Date: 20250409
  Serious: Yes (Hospitalization)
  Sender: ABBVIE
  Company Number: JP-ABBVIE-6091001

PATIENT
  Age: 66 Year
  Sex: Male

DRUGS (1)
  1. RINVOQ [Suspect]
     Active Substance: UPADACITINIB
     Indication: Colitis ulcerative
     Route: 048
     Dates: start: 20241129, end: 202501

REACTIONS (2)
  - Cytomegalovirus enterocolitis [Recovered/Resolved]
  - Colitis ulcerative [Unknown]

NARRATIVE: CASE EVENT DATE: 20250101
